FAERS Safety Report 8549006-1 (Version None)
Quarter: 2012Q3

REPORT INFORMATION
  Report Type: 
  Country: None (occurrence: None)
  Receive Date: 20120730
  Receipt Date: 20120717
  Transmission Date: 20120928
  Serious: Yes (Death)
  Sender: FDA-Public Use
  Company Number: IE-MILLENNIUM PHARMACEUTICALS, INC.-2012-05049

PATIENT

DRUGS (17)
  1. ARCOXIA [Concomitant]
  2. ANXICALM                           /00017001/ [Concomitant]
     Dosage: 5 MG, UNK
  3. HYTRIN [Concomitant]
  4. ZOPICLONE [Concomitant]
  5. PREDNISOLONE [Concomitant]
  6. ASPIRIN [Concomitant]
  7. STEMETIL                           /00013301/ [Concomitant]
  8. PLAVIX [Concomitant]
  9. ZOCOR [Concomitant]
  10. MOVICOL                            /01053601/ [Concomitant]
  11. FRUMIL [Concomitant]
  12. CODALAX                            /00161701/ [Concomitant]
  13. MELPHALAN HYDROCHLORIDE [Concomitant]
  14. VELCADE [Suspect]
     Indication: MULTIPLE MYELOMA
     Dosage: 1.3 MG/M2, UNK
     Route: 065
     Dates: start: 20090908
  15. VALOID                             /00014901/ [Concomitant]
  16. ZOMETA [Concomitant]
  17. TRENTAL [Concomitant]

REACTIONS (1)
  - COMPLETED SUICIDE [None]
